FAERS Safety Report 6394520-0 (Version None)
Quarter: 2009Q4

REPORT INFORMATION
  Report Type: 
  Country: None (occurrence: None)
  Receive Date: 20091009
  Receipt Date: 20090929
  Transmission Date: 20100525
  Serious: Yes (Other)
  Sender: FDA-Public Use
  Company Number: AT-BAYER-200934198GPV

PATIENT
  Age: 37 Year
  Sex: Female
  Weight: 92 kg

DRUGS (1)
  1. YASMIN [Suspect]
     Indication: HYPERTRICHOSIS
     Dates: start: 20090413

REACTIONS (2)
  - PNEUMONIA [None]
  - PULMONARY INFARCTION [None]
